FAERS Safety Report 9716148 (Version 2)
Quarter: 2013Q4

REPORT INFORMATION
  Report Type: Report from Study
  Country: US (occurrence: US)
  Receive Date: 20131127
  Receipt Date: 20131202
  Transmission Date: 20140711
  Serious: Yes (Hospitalization)
  Sender: FDA-Public Use
  Company Number: US-MERCK-1311USA010164

PATIENT
  Age: 86 Year
  Sex: Male
  Weight: 91.4 kg

DRUGS (3)
  1. VORINOSTAT [Suspect]
     Indication: MYELODYSPLASTIC SYNDROME
     Dosage: 300 MG, BID, CYCLE 1
     Route: 048
     Dates: start: 20131113, end: 20131116
  2. VORINOSTAT [Suspect]
     Dosage: 300 MG, BID, CYCLE 1
     Route: 048
     Dates: start: 20131118, end: 20131118
  3. AZACITIDINE [Suspect]
     Indication: MYELODYSPLASTIC SYNDROME
     Dosage: 75 MG/M2, QD, CYCLE 1
     Dates: start: 20131111, end: 20131115

REACTIONS (1)
  - Laryngeal haemorrhage [Recovered/Resolved]
